FAERS Safety Report 5703264-7 (Version None)
Quarter: 2008Q2

REPORT INFORMATION
  Report Type: 
  Country: None (occurrence: None)
  Receive Date: 20080411
  Receipt Date: 20080327
  Transmission Date: 20081010
  Serious: Yes (Death)
  Sender: FDA-Public Use
  Company Number: JP-GENENTECH-258757

PATIENT
  Sex: Female

DRUGS (8)
  1. BEVACIZUMAB [Suspect]
     Indication: RECTAL CANCER RECURRENT
     Dosage: 5 MG/KG, QD
     Route: 042
     Dates: start: 20070731, end: 20071030
  2. IRINOTECAN HCL [Suspect]
     Indication: RECTAL CANCER RECURRENT
     Dosage: 180 MG/M2, QD
     Route: 042
     Dates: start: 20070731, end: 20071030
  3. FLUOROURACIL [Suspect]
     Indication: RECTAL CANCER RECURRENT
     Dosage: 400 MG/M2, QD
     Route: 065
     Dates: start: 20070731, end: 20071030
  4. ISOVORIN [Suspect]
     Indication: RECTAL CANCER RECURRENT
     Dosage: 200 MG/M2, QD
     Route: 041
     Dates: start: 20070731, end: 20071030
  5. AMARYL [Concomitant]
     Indication: DRUG USE FOR UNKNOWN INDICATION
  6. MIGLITOL [Concomitant]
     Indication: DRUG USE FOR UNKNOWN INDICATION
  7. CRESTOR [Concomitant]
     Indication: DRUG USE FOR UNKNOWN INDICATION
  8. MICARDIS [Concomitant]
     Indication: DRUG USE FOR UNKNOWN INDICATION

REACTIONS (1)
  - INTERSTITIAL LUNG DISEASE [None]
